FAERS Safety Report 17244084 (Version 5)
Quarter: 2020Q2

REPORT INFORMATION
  Report Type: Report from Study
  Country: IT (occurrence: IT)
  Receive Date: 20200107
  Receipt Date: 20200424
  Transmission Date: 20200713
  Serious: Yes (Other)
  Sender: FDA-Public Use
  Company Number: PHHY2019IT167550

PATIENT
  Age: 77 Year
  Sex: Female

DRUGS (9)
  1. TAFINLAR [Suspect]
     Active Substance: DABRAFENIB MESYLATE
     Dosage: 300 OT, UNK
     Route: 065
     Dates: start: 20190408, end: 20190416
  2. IDROCLOROTIAZIDE [Concomitant]
     Active Substance: HYDROCHLOROTHIAZIDE
     Indication: HYPERTENSION
     Dosage: UNK
     Route: 048
  3. TAFINLAR [Suspect]
     Active Substance: DABRAFENIB MESYLATE
     Dosage: 300 OT, UNK
     Route: 065
     Dates: start: 20190419
  4. VALSARTAN. [Concomitant]
     Active Substance: VALSARTAN
     Indication: HYPERTENSION
     Dosage: UNK
     Route: 048
  5. TAFINLAR [Suspect]
     Active Substance: DABRAFENIB MESYLATE
     Indication: METASTATIC MALIGNANT MELANOMA
     Dosage: 300 UNK
     Route: 065
     Dates: start: 20190327
  6. TRAMETINIB [Suspect]
     Active Substance: TRAMETINIB
     Dosage: UNK
     Route: 065
     Dates: start: 20190803, end: 20190814
  7. TRAMETINIB [Suspect]
     Active Substance: TRAMETINIB
     Dosage: 2 OT, UNK
     Route: 065
     Dates: start: 20190408, end: 20190416
  8. TRAMETINIB [Suspect]
     Active Substance: TRAMETINIB
     Indication: METASTATIC MALIGNANT MELANOMA
     Dosage: 2 OT, UNK
     Route: 065
     Dates: start: 20190327, end: 20190403
  9. TRAMETINIB [Suspect]
     Active Substance: TRAMETINIB
     Dosage: 2 OT, UNK
     Route: 065
     Dates: start: 20190419

REACTIONS (8)
  - Toxic skin eruption [Not Recovered/Not Resolved]
  - Amnesia [Recovered/Resolved]
  - Skin exfoliation [Not Recovered/Not Resolved]
  - Headache [Recovered/Resolved]
  - Bone pain [Recovered/Resolved]
  - Pyrexia [Recovered/Resolved]
  - Rash erythematous [Recovered/Resolved]
  - Pyrexia [Recovered/Resolved]

NARRATIVE: CASE EVENT DATE: 20190404
